FAERS Safety Report 15769136 (Version 2)
Quarter: 2019Q1

REPORT INFORMATION
  Report Type: Spontaneous
  Country: PL (occurrence: PL)
  Receive Date: 20181228
  Receipt Date: 20190113
  Transmission Date: 20190417
  Serious: Yes (Life-Threatening, Other)
  Sender: FDA-Public Use
  Company Number: PL-TEVA-2018-PL-991737

PATIENT
  Age: 10 Year
  Sex: Male
  Weight: 29.5 kg

DRUGS (1)
  1. VINCRISTINE TEVA [Suspect]
     Active Substance: VINCRISTINE
     Indication: ACUTE LYMPHOCYTIC LEUKAEMIA
     Route: 042
     Dates: start: 20181115, end: 20181206

REACTIONS (12)
  - Pancreatitis acute [Recovering/Resolving]
  - Pain [Recovering/Resolving]
  - Posterior reversible encephalopathy syndrome [Recovering/Resolving]
  - Neuropathy peripheral [Recovering/Resolving]
  - Dyspnoea [Recovering/Resolving]
  - Blood bilirubin increased [Recovering/Resolving]
  - Blood pressure increased [Recovering/Resolving]
  - Paraesthesia [Recovering/Resolving]
  - Seizure [Recovering/Resolving]
  - Cholestasis [Recovering/Resolving]
  - Ileus paralytic [Recovered/Resolved]
  - Bile duct obstruction [Recovering/Resolving]

NARRATIVE: CASE EVENT DATE: 201812
